FAERS Safety Report 13898780 (Version 1)
Quarter: 2017Q3

REPORT INFORMATION
  Report Type: Spontaneous
  Country: FR (occurrence: FR)
  Receive Date: 20170824
  Receipt Date: 20170824
  Transmission Date: 20171127
  Serious: Yes (Life-Threatening, Other)
  Sender: FDA-Public Use
  Company Number: FR-GLAXOSMITHKLINE-FR2017GSK131080

PATIENT
  Age: 43 Year
  Sex: Female

DRUGS (6)
  1. ZOMIG [Suspect]
     Active Substance: ZOLMITRIPTAN
     Indication: MIGRAINE
     Dosage: UNK UNK, TID
     Route: 048
     Dates: end: 20170724
  2. PROPRANOLOL [Concomitant]
     Active Substance: PROPRANOLOL HYDROCHLORIDE
     Indication: PRODUCT USED FOR UNKNOWN INDICATION
     Dosage: UNK UNK, PRN
  3. PACLITAXEL. [Concomitant]
     Active Substance: PACLITAXEL
     Indication: PROPHYLACTIC CHEMOTHERAPY
     Dosage: UNK UNK, CYC
     Dates: start: 20170711
  4. KETOPROFEN. [Concomitant]
     Active Substance: KETOPROFEN
     Indication: PRODUCT USED FOR UNKNOWN INDICATION
     Dosage: UNK UNK, PRN
  5. NARAMIG [Suspect]
     Active Substance: NARATRIPTAN HYDROCHLORIDE
     Indication: MIGRAINE
     Dosage: UNK UNK, TID
     Route: 048
     Dates: end: 20170724
  6. CISPLATINE [Concomitant]
     Active Substance: CISPLATIN
     Indication: PROPHYLACTIC CHEMOTHERAPY
     Dosage: UNK UNK, CYC
     Dates: start: 20170711

REACTIONS (1)
  - Cerebrovascular accident [Recovered/Resolved with Sequelae]

NARRATIVE: CASE EVENT DATE: 20170724
